FAERS Safety Report 23341029 (Version 1)
Quarter: 2023Q4

REPORT INFORMATION
  Report Type: Spontaneous
  Country: IT (occurrence: IT)
  Receive Date: 20231227
  Receipt Date: 20231227
  Transmission Date: 20240109
  Serious: Yes (Other)
  Sender: FDA-Public Use
  Company Number: None

PATIENT
  Age: 69 Year
  Sex: Male

DRUGS (5)
  1. LUCENTIS [Suspect]
     Active Substance: RANIBIZUMAB
     Indication: Neovascular age-related macular degeneration
     Dosage: 1 DOSAGE FORM
     Route: 050
     Dates: start: 20211125, end: 20211125
  2. BEOVU [Suspect]
     Active Substance: BROLUCIZUMAB-DBLL
     Indication: Neovascular age-related macular degeneration
     Dosage: 1 DOSAGE FORM
     Route: 050
     Dates: start: 20220224, end: 20220224
  3. BEOVU [Suspect]
     Active Substance: BROLUCIZUMAB-DBLL
     Dosage: 1 DOSAGE FORM
     Route: 050
     Dates: start: 20220630, end: 20220630
  4. BEOVU [Suspect]
     Active Substance: BROLUCIZUMAB-DBLL
     Dosage: 1 DOSAGE FORM
     Route: 050
     Dates: start: 20221103, end: 20221103
  5. BEOVU [Suspect]
     Active Substance: BROLUCIZUMAB-DBLL
     Dosage: 1 DOSAGE FORM
     Route: 050
     Dates: start: 20230119, end: 20230119

REACTIONS (3)
  - Subretinal fluid [Not Recovered/Not Resolved]
  - Retinal oedema [Not Recovered/Not Resolved]
  - Therapeutic product effect decreased [Not Recovered/Not Resolved]

NARRATIVE: CASE EVENT DATE: 20231206
